FAERS Safety Report 9315973 (Version 1)
Quarter: 2013Q2

REPORT INFORMATION
  Report Type: Spontaneous
  Country: DE (occurrence: DE)
  Receive Date: 20130530
  Receipt Date: 20130530
  Transmission Date: 20140414
  Serious: Yes (Hospitalization)
  Sender: FDA-Public Use
  Company Number: DE-BIOGENIDEC-2013BI047295

PATIENT
  Age: 67 Year
  Sex: Female

DRUGS (2)
  1. AVONEX [Suspect]
     Indication: MULTIPLE SCLEROSIS
     Route: 030
     Dates: start: 2004
  2. IBUPROFEN [Concomitant]
     Indication: PROPHYLAXIS
     Dates: start: 2004

REACTIONS (3)
  - Hypertension [Unknown]
  - Nasopharyngitis [Recovered/Resolved]
  - Ankle fracture [Recovered/Resolved with Sequelae]
